FAERS Safety Report 6688054-3 (Version None)
Quarter: 2010Q2

REPORT INFORMATION
  Report Type: 
  Country: None (occurrence: None)
  Receive Date: 20100420
  Receipt Date: 20100412
  Transmission Date: 20101027
  Serious: Yes (Life-Threatening, Hospitalization)
  Sender: FDA-Public Use
  Company Number: PHHY2010US23241

PATIENT
  Sex: Female
  Weight: 63.4 kg

DRUGS (13)
  1. EXJADE [Suspect]
     Indication: ANAEMIA
     Dosage: 1500 MG, QD
     Route: 048
     Dates: start: 20100204, end: 20100323
  2. EXJADE [Suspect]
     Indication: IRON OVERLOAD
  3. DESFERAL [Suspect]
     Dosage: UNK
     Route: 042
  4. CALCIUM-D [Concomitant]
     Dosage: 1 TABLET DAILY
     Dates: start: 20090824
  5. CELEBREX [Concomitant]
     Dosage: 2 CAPSULE DAILY
     Dates: start: 20091116
  6. GABAPENTIN [Concomitant]
     Dosage: 1 CAPSULE DAILY
     Dates: start: 20100401
  7. OXYCODONE HCL [Concomitant]
     Indication: PAIN
     Dosage: 1-2 TABLETS EVERY 4 HOURS
     Dates: start: 20071001
  8. PENTAM [Concomitant]
     Dosage: 300 MG; UNK
     Dates: start: 20100115
  9. ALBUTEROL [Concomitant]
     Dosage: UNK
  10. TRAZODONE HYDROCHLORIDE [Concomitant]
     Dosage: 1 TABLET BEDTIME
     Dates: start: 20080609
  11. VFEND [Concomitant]
     Dosage: 1 TABLET EVERY 12 HOURS DAILY
     Dates: start: 20100115
  12. VITAMIN B COMPLEX CAP [Concomitant]
     Dosage: 1 CAPSULE DAILY
     Dates: start: 20090824
  13. ZYRTEC [Concomitant]
     Dosage: 1 CAPSULE DAILY
     Dates: start: 20100401

REACTIONS (5)
  - ACUTE MYELOID LEUKAEMIA [None]
  - CULTURE URINE POSITIVE [None]
  - INFECTION [None]
  - MALAISE [None]
  - PYREXIA [None]
